FAERS Safety Report 9157216 (Version 1)
Quarter: 2013Q1

REPORT INFORMATION
  Report Type: Spontaneous
  Country: US (occurrence: None)
  Receive Date: 20130308
  Receipt Date: 20130308
  Transmission Date: 20140127
  Serious: Yes (Other)
  Sender: FDA-Public Use
  Company Number: None

PATIENT
  Age: 64 Year
  Sex: 0
  Weight: 73.94 kg

DRUGS (1)
  1. CIPROFLOXACIN [Suspect]
     Indication: CYSTITIS
     Dosage: 250MG  1 EVERY 12HRS  MOUTH?2/13 - 2/16
     Route: 048

REACTIONS (6)
  - Tendon pain [None]
  - Gait disturbance [None]
  - Pain in extremity [None]
  - Muscular weakness [None]
  - Burning sensation [None]
  - Paraesthesia [None]
